FAERS Safety Report 9128830 (Version 2)
Quarter: 2014Q2

REPORT INFORMATION
  Report Type: Spontaneous
  Country: US (occurrence: US)
  Receive Date: 20130228
  Receipt Date: 20140613
  Transmission Date: 20141212
  Serious: Yes (Other)
  Sender: FDA-Public Use
  Company Number: US-BAYER-2013-026009

PATIENT
  Age: 18 Year
  Sex: Female

DRUGS (13)
  1. YAZ [Suspect]
  2. YASMIN [Suspect]
  3. OCELLA [Suspect]
  4. VICODIN [Concomitant]
  5. IBUPROFEN [Concomitant]
     Dosage: 600 MG TO 800 MG AS NEEDED] [EVERY 8 HOURS
  6. PRENATAL VITAMINS [Concomitant]
  7. ZOLPIDEM [Concomitant]
     Indication: INSOMNIA
     Dosage: 5 MG, PRN
  8. NITROFURANTOIN [Concomitant]
  9. FLUOXETINE [Concomitant]
     Dosage: 10 MG, UNK
  10. ACETAMINOPHEN [Concomitant]
     Indication: PAIN
     Dosage: 650 MG, PRN
  11. PREDNISONE [Concomitant]
     Dosage: 60 MG, UFOR 5 DAYS
  12. MOTRIN [Concomitant]
     Indication: BACK PAIN
     Dosage: UNK
     Route: 048
     Dates: start: 20090726
  13. PHENERGAN [Concomitant]

REACTIONS (6)
  - Cholecystectomy [None]
  - Injury [None]
  - Pain [None]
  - Cholelithiasis [None]
  - Emotional distress [None]
  - Pain [None]
